FAERS Safety Report 7071417-4 (Version None)
Quarter: 2010Q4

REPORT INFORMATION
  Report Type: 
  Country: None (occurrence: None)
  Receive Date: 20101029
  Receipt Date: 20091201
  Transmission Date: 20110411
  Serious: No
  Sender: FDA-Public Use
  Company Number: A0795884A

PATIENT
  Age: 80 Year
  Sex: Female

DRUGS (8)
  1. ADVAIR DISKUS 100/50 [Suspect]
     Dosage: 1PUFF TWICE PER DAY
     Route: 055
     Dates: start: 20030101, end: 20080402
  2. ADVAIR DISKUS 100/50 [Suspect]
     Dosage: 1PUFF TWICE PER DAY
     Route: 055
     Dates: start: 20080406
  3. OXYCODONE [Concomitant]
     Dosage: 20MG TWICE PER DAY
     Route: 048
  4. OSCAL [Concomitant]
     Route: 048
  5. PRENATAL VITAMINS [Concomitant]
     Route: 048
  6. PROVENTIL [Concomitant]
     Dosage: 2PUFF FOUR TIMES PER DAY
     Route: 055
  7. LISINOPRIL [Concomitant]
     Dosage: 10MG PER DAY
  8. GAS X [Concomitant]
     Route: 048

REACTIONS (1)
  - DYSPHONIA [None]
